FAERS Safety Report 9133149 (Version 1)
Quarter: 2013Q1

REPORT INFORMATION
  Report Type: Spontaneous
  Country: US (occurrence: US)
  Receive Date: 20130128
  Receipt Date: 20130128
  Transmission Date: 20140127
  Serious: No
  Sender: FDA-Public Use
  Company Number: US-TEVA-382597USA

PATIENT
  Age: 59 Year
  Sex: Female
  Weight: 61.29 kg

DRUGS (5)
  1. QNASL [Suspect]
     Indication: NASAL CONGESTION
     Dosage: 160 MICROGRAM DAILY; 1 SPRAY PER NOSTRIL DAILY
     Route: 045
     Dates: start: 20130111, end: 20130119
  2. QNASL [Suspect]
     Indication: NASAL DISCOMFORT
  3. DIOVAN [Concomitant]
     Indication: HYPERTENSION
     Route: 048
  4. VITAMIN D [Concomitant]
     Indication: VITAMIN SUPPLEMENTATION
     Route: 048
  5. ASPIRIN [Concomitant]
     Indication: CARDIAC DISORDER
     Dosage: 81 MILLIGRAM DAILY;
     Route: 048

REACTIONS (2)
  - Epistaxis [Not Recovered/Not Resolved]
  - Nasal discomfort [Recovering/Resolving]
